FAERS Safety Report 12343157 (Version 8)
Quarter: 2016Q4

REPORT INFORMATION
  Report Type: Spontaneous
  Country: JP (occurrence: JP)
  Receive Date: 20160506
  Receipt Date: 20161027
  Transmission Date: 20170207
  Serious: Yes (Hospitalization, Other)
  Sender: FDA-Public Use
  Company Number: JP-ABBVIE-16P-087-1622414-00

PATIENT
  Age: 44 Year
  Sex: Female
  Weight: 55 kg

DRUGS (3)
  1. SODIUM PICOSULFATE [Concomitant]
     Active Substance: SODIUM PICOSULFATE
     Indication: CONSTIPATION
     Dosage: UNK
     Route: 048
     Dates: start: 20160307
  2. MAGMITT [Concomitant]
     Active Substance: MAGNESIUM OXIDE
     Indication: CONSTIPATION
     Dosage: 990 MG, TID
     Route: 048
     Dates: start: 20160229
  3. LEUPLIN [Suspect]
     Active Substance: LEUPROLIDE ACETATE
     Indication: UTERINE LEIOMYOMA
     Dosage: 1.88 MG, Q4WEEKS
     Route: 058
     Dates: start: 20160307, end: 20160414

REACTIONS (7)
  - Mental disorder [Not Recovered/Not Resolved]
  - White blood cell count increased [Unknown]
  - Amnesia [Unknown]
  - Suicide attempt [Unknown]
  - Depressive symptom [Unknown]
  - Dysstasia [Unknown]
  - Anal incontinence [Unknown]

NARRATIVE: CASE EVENT DATE: 20160307
